FAERS Safety Report 6414747-9 (Version None)
Quarter: 2009Q4

REPORT INFORMATION
  Report Type: 
  Country: None (occurrence: None)
  Receive Date: 20091026
  Receipt Date: 20091026
  Transmission Date: 20100525
  Serious: Yes (Life-Threatening)
  Sender: FDA-Public Use
  Company Number: None

PATIENT
  Age: 48 Year
  Sex: Male
  Weight: 49.8957 kg

DRUGS (2)
  1. HEPARIN [Suspect]
     Indication: MYOCARDIAL INFARCTION
     Dosage: 15000 IU
     Dates: start: 20090704, end: 20090716
  2. ENOXAPARIN SODIUM [Suspect]

REACTIONS (1)
  - EPILEPSY [None]
